FAERS Safety Report 4350014-5 (Version None)
Quarter: 2004Q2

REPORT INFORMATION
  Report Type: 
  Country: None (occurrence: None)
  Receive Date: 20040428
  Receipt Date: 20040428
  Transmission Date: 20050107
  Serious: Yes (Hospitalization)
  Sender: FDA-Public Use
  Company Number: None

PATIENT
  Sex: Male

DRUGS (7)
  1. GLYBURIDE [Suspect]
     Indication: DIABETES MELLITUS
     Dosage: 10 MG DIALY ORAL
     Route: 048
  2. PROCHLOROPERAZINE [Concomitant]
  3. PREDNISONE [Concomitant]
  4. TERAZEPAM [Concomitant]
  5. OXYCODONE AND ACETAMINOPHEN [Concomitant]
  6. MORPHINE [Concomitant]
  7. SENNOSIDES [Concomitant]

REACTIONS (4)
  - BLOOD GLUCOSE DECREASED [None]
  - DEHYDRATION [None]
  - DIARRHOEA [None]
  - MARKEDLY REDUCED DIETARY INTAKE [None]
